FAERS Safety Report 5125264-0 (Version None)
Quarter: 2006Q4

REPORT INFORMATION
  Report Type: 
  Country: None (occurrence: None)
  Receive Date: 20061006
  Receipt Date: 20060920
  Transmission Date: 20070319
  Serious: Yes (Death)
  Sender: FDA-Public Use
  Company Number: 2006001839

PATIENT
  Sex: Male

DRUGS (1)
  1. TARCEVA [Suspect]
     Indication: LUNG CANCER METASTATIC
     Dosage: ORAL
     Route: 048

REACTIONS (4)
  - CONJUNCTIVITIS [None]
  - DERMATITIS ACNEIFORM [None]
  - MOUTH HAEMORRHAGE [None]
  - STEVENS-JOHNSON SYNDROME [None]
